FAERS Safety Report 7732368-2 (Version None)
Quarter: 2011Q3

REPORT INFORMATION
  Report Type: 
  Country: None (occurrence: None)
  Receive Date: 20110906
  Receipt Date: 20110830
  Transmission Date: 20111222
  Serious: Yes (Death, Other)
  Sender: FDA-Public Use
  Company Number: US-ASTRAZENECA-2011SE42478

PATIENT
  Age: 19456 Day
  Sex: Male

DRUGS (8)
  1. SEROQUEL [Suspect]
     Indication: INSOMNIA
     Dosage: 100 MG 1 TO 2 TABLETS AT NIGHT
     Route: 048
  2. SEROQUEL [Suspect]
     Route: 048
     Dates: start: 20101101
  3. SEROQUEL [Suspect]
     Route: 048
     Dates: start: 20101101
  4. SEROQUEL [Suspect]
     Route: 048
     Dates: start: 20071101
  5. SEROQUEL [Suspect]
     Route: 048
     Dates: start: 20071101
  6. COUMADIN [Concomitant]
     Indication: AORTIC VALVE REPLACEMENT
  7. SEROQUEL [Suspect]
     Indication: ANXIETY
     Dosage: 100 MG 1 TO 2 TABLETS AT NIGHT
     Route: 048
  8. BLOOD PRESSURE MED [Concomitant]
     Indication: BLOOD PRESSURE

REACTIONS (6)
  - CARDIAC DISORDER [None]
  - OFF LABEL USE [None]
  - MYOCARDIAL INFARCTION [None]
  - CARDIAC ARREST [None]
  - DRUG DOSE OMISSION [None]
  - CORONARY ARTERY DISEASE [None]
